FAERS Safety Report 6980076-8 (Version None)
Quarter: 2010Q3

REPORT INFORMATION
  Report Type: 
  Country: None (occurrence: None)
  Receive Date: 20100909
  Receipt Date: 20100823
  Transmission Date: 20110219
  Serious: Yes (Other)
  Sender: FDA-Public Use
  Company Number: 20100403

PATIENT
  Age: 52 Year
  Sex: Female

DRUGS (3)
  1. METHYLENE BLUE INJECTION, USP (0301-10) (METHYLENE BLUE) 1% [Suspect]
     Indication: PARATHYROID DISORDER
     Dosage: 7.5 MG/KG (650 MG  TOTAL) INJECTION
  2. MEBEVERINE [Concomitant]
  3. VENLAFAXINE [Suspect]

REACTIONS (9)
  - APHASIA [None]
  - BLOOD GLUCOSE INCREASED [None]
  - BLOOD METHAEMOGLOBIN PRESENT [None]
  - CONFUSIONAL STATE [None]
  - DELAYED RECOVERY FROM ANAESTHESIA [None]
  - DRUG INTERACTION [None]
  - DRUG TOXICITY [None]
  - NYSTAGMUS [None]
  - WHITE BLOOD CELL COUNT INCREASED [None]
